FAERS Safety Report 9168225 (Version 1)
Quarter: 2013Q1

REPORT INFORMATION
  Report Type: Spontaneous
  Country: IL (occurrence: IL)
  Receive Date: 20130318
  Receipt Date: 20130318
  Transmission Date: 20140127
  Serious: Yes (Hospitalization)
  Sender: FDA-Public Use
  Company Number: PHHY2013IL022110

PATIENT
  Age: 32 Year
  Sex: Male

DRUGS (8)
  1. TOBI PODHALER [Suspect]
     Indication: CYSTIC FIBROSIS
     Dosage: 112 MG, BID
     Dates: start: 20120920
  2. AQUADEKS [Concomitant]
  3. AZENIL [Concomitant]
     Dosage: 250 MG, X1/D
  4. CREON [Concomitant]
  5. RIFAMPIN [Concomitant]
     Dosage: 600 MG, X1/D
  6. PULMOZYME [Concomitant]
     Dosage: 2.5 MG, X/1D
  7. FUCIDIN                                 /SCH/ [Concomitant]
     Dosage: 500 MG, X3/D
     Route: 048
  8. VENTOLIN                           /00942701/ [Concomitant]

REACTIONS (1)
  - Respiratory disorder [Unknown]
